FAERS Safety Report 7700790-6 (Version None)
Quarter: 2011Q3

REPORT INFORMATION
  Report Type: 
  Country: None (occurrence: None)
  Receive Date: 20110822
  Receipt Date: 20110816
  Transmission Date: 20111222
  Serious: Yes (Other)
  Sender: FDA-Public Use
  Company Number: FR-ROCHE-792124

PATIENT
  Sex: Female
  Weight: 106 kg

DRUGS (9)
  1. ACTEMRA [Suspect]
     Dosage: FREQUENCY: MONTHLY
     Route: 065
     Dates: start: 20110711
  2. ACTEMRA [Suspect]
     Indication: JUVENILE ARTHRITIS
     Route: 065
     Dates: start: 20100211
  3. SURGESTONE [Concomitant]
     Dosage: FREQUENCY: 1/DAY DURING 10 DAYS/MONTH
     Route: 048
  4. ACETAMINOPHEN [Concomitant]
     Dosage: FREQUENCY: 4 DAY
     Route: 048
  5. ACTEMRA [Suspect]
     Dosage: FREQUENCY: MONTHLY
     Route: 065
     Dates: start: 20110419
  6. ATORVASTATIN CALCIUM [Concomitant]
  7. ACTEMRA [Suspect]
     Dosage: FREQUENCY: MONTHLY
     Route: 065
     Dates: start: 20110518
  8. ACTEMRA [Suspect]
     Dosage: FREQUENCY: MONTHLY
     Route: 065
     Dates: start: 20110615
  9. OMEPRAZOLE [Concomitant]

REACTIONS (1)
  - COLITIS ULCERATIVE [None]
